FAERS Safety Report 11094747 (Version 1)
Quarter: 2015Q2

REPORT INFORMATION
  Report Type: Spontaneous
  Country: DE (occurrence: DE)
  Receive Date: 20150506
  Receipt Date: 20150506
  Transmission Date: 20150821
  Serious: Yes (Other)
  Sender: FDA-Public Use
  Company Number: DE-FRI-1000076321

PATIENT
  Sex: Male
  Weight: 56 kg

DRUGS (2)
  1. CAMPRAL [Suspect]
     Active Substance: ACAMPROSATE CALCIUM
     Indication: ALCOHOLISM
     Dosage: 4 DF
     Route: 048
     Dates: start: 20150213, end: 20150305
  2. CAMPRAL [Suspect]
     Active Substance: ACAMPROSATE CALCIUM
     Dosage: 3 DF
     Route: 048
     Dates: start: 20150305

REACTIONS (4)
  - Fatigue [Not Recovered/Not Resolved]
  - Bone marrow failure [Unknown]
  - Influenza like illness [Not Recovered/Not Resolved]
  - Abdominal pain upper [Recovered/Resolved]

NARRATIVE: CASE EVENT DATE: 20150218
